FAERS Safety Report 10856707 (Version 1)
Quarter: 2015Q1

REPORT INFORMATION
  Report Type: Spontaneous
  Country: FR (occurrence: FR)
  Receive Date: 20150223
  Receipt Date: 20150223
  Transmission Date: 20150721
  Serious: Yes (Hospitalization)
  Sender: FDA-Public Use
  Company Number: FR-B.I. PHARMACEUTICALS,INC./RIDGEFIELD-2015-BI-08381FF

PATIENT
  Age: 90 Year
  Sex: Female
  Weight: 80 kg

DRUGS (1)
  1. PRADAXA [Suspect]
     Active Substance: DABIGATRAN ETEXILATE MESYLATE
     Indication: ATRIAL FIBRILLATION
     Route: 048
     Dates: end: 20150204

REACTIONS (4)
  - Anaemia [Not Recovered/Not Resolved]
  - Haematuria [Not Recovered/Not Resolved]
  - Anticoagulation drug level above therapeutic [Not Recovered/Not Resolved]
  - Prerenal failure [Not Recovered/Not Resolved]

NARRATIVE: CASE EVENT DATE: 20150204
